FAERS Safety Report 21171336 (Version 1)
Quarter: 2022Q3

REPORT INFORMATION
  Report Type: Spontaneous
  Country: US (occurrence: None)
  Receive Date: 20220803
  Receipt Date: 20220803
  Transmission Date: 20221026
  Serious: No
  Sender: FDA-Public Use
  Company Number: None

PATIENT
  Age: 92 Year
  Sex: Female

DRUGS (1)
  1. PROLIA [Suspect]
     Active Substance: DENOSUMAB
     Dosage: OTHER FREQUENCY : Q 6MONTHS;?
     Route: 058
     Dates: start: 201708, end: 202207

REACTIONS (2)
  - Infection [None]
  - Gingival swelling [None]

NARRATIVE: CASE EVENT DATE: 20220727
